FAERS Safety Report 17776149 (Version 1)
Quarter: 2020Q2

REPORT INFORMATION
  Report Type: Spontaneous
  Country: US (occurrence: US)
  Receive Date: 20200513
  Receipt Date: 20200513
  Transmission Date: 20200714
  Serious: No
  Sender: FDA-Public Use
  Company Number: US-PFIZER INC-2020190131

PATIENT
  Sex: Female

DRUGS (1)
  1. SOLU-MEDROL [Suspect]
     Active Substance: METHYLPREDNISOLONE SODIUM SUCCINATE
     Indication: BURSITIS
     Dosage: 6 ML
     Dates: start: 202004

REACTIONS (10)
  - Migraine [Unknown]
  - Vision blurred [Unknown]
  - Acne [Unknown]
  - Product dispensing error [Unknown]
  - Overdose [Unknown]
  - Malaise [Unknown]
  - Limb discomfort [Unknown]
  - Thirst [Unknown]
  - Bone disorder [Unknown]
  - Dehydration [Unknown]
